FAERS Safety Report 4883595-3 (Version None)
Quarter: 2006Q1

REPORT INFORMATION
  Report Type: 
  Country: None (occurrence: None)
  Receive Date: 20060118
  Receipt Date: 20060105
  Transmission Date: 20060701
  Serious: Yes (Other)
  Sender: FDA-Public Use
  Company Number: US-GILEAD-2006-0009089

PATIENT
  Age: 44 Year
  Sex: Male

DRUGS (3)
  1. VIREAD [Suspect]
     Indication: HIV INFECTION
  2. DIDANOSINE [Concomitant]
     Indication: HIV INFECTION
  3. LOPINAVIR/RITONAVIR [Concomitant]
     Indication: HIV INFECTION

REACTIONS (2)
  - IMMUNE RECONSTITUTION SYNDROME [None]
  - RESPIRATORY PAPILLOMA [None]
